FAERS Safety Report 5819767-0 (Version None)
Quarter: 2008Q3

REPORT INFORMATION
  Report Type: 
  Country: None (occurrence: None)
  Receive Date: 20080718
  Receipt Date: 20080715
  Transmission Date: 20090109
  Serious: Yes (Other)
  Sender: FDA-Public Use
  Company Number: 2008SP012936

PATIENT
  Age: 57 Year
  Sex: Male
  Weight: 62.3 kg

DRUGS (5)
  1. PEGINTERFERON ALFA-2B (S-P) (PEGINTERFERON ALFA-2B) [Suspect]
     Indication: HEPATIC CIRRHOSIS
     Dosage: 1.0 MCG/KG;QW;SC
     Route: 058
     Dates: start: 20071221, end: 20080612
  2. RIBAVIRIN [Suspect]
     Indication: HEPATIC CIRRHOSIS
     Dosage: 800 MG;QD;PO
     Route: 048
     Dates: start: 20071221, end: 20080618
  3. ALINAMIN-F [Concomitant]
  4. METHYCOOL [Concomitant]
  5. FAMOTIDINE D [Concomitant]

REACTIONS (4)
  - COLONIC POLYP [None]
  - LYMPHOMA [None]
  - METASTASES TO LYMPH NODES [None]
  - METASTASES TO SPLEEN [None]
